FAERS Safety Report 5386852-X (Version None)
Quarter: 2007Q3

REPORT INFORMATION
  Report Type: 
  Country: None (occurrence: None)
  Receive Date: 20070713
  Receipt Date: 20070702
  Transmission Date: 20080115
  Serious: Yes (Other)
  Sender: FDA-Public Use
  Company Number: US-PFIZER INC-2007030463

PATIENT
  Sex: Female
  Weight: 100.8 kg

DRUGS (10)
  1. INHALED HUMAN INSULIN [Suspect]
     Indication: TYPE 2 DIABETES MELLITUS
     Dosage: DAILY DOSE:23MG-TEXT:9MG WITH BRKFST/LUNCH  14MG WITH DINNER-FREQ:BREAKFAST, LUNCH/DINNER
     Route: 055
     Dates: start: 20060125, end: 20070128
  2. METFORMIN HCL [Suspect]
     Indication: TYPE 2 DIABETES MELLITUS
     Route: 048
  3. GLIMEPIRIDE [Suspect]
     Indication: TYPE 2 DIABETES MELLITUS
     Route: 048
     Dates: start: 20030101
  4. PREMARIN [Concomitant]
     Route: 048
     Dates: start: 19650101
  5. HYDROCHLOROTHIAZIDE [Concomitant]
     Route: 048
     Dates: start: 19990101
  6. ATACAND [Concomitant]
     Route: 048
     Dates: start: 20030101
  7. ESOMEPRAZOLE MAGNESIUM [Concomitant]
     Dosage: DAILY DOSE:40MG
     Route: 048
     Dates: start: 20030101
  8. CELEBREX [Concomitant]
     Route: 048
     Dates: start: 20020101
  9. ASPIRIN [Concomitant]
     Route: 048
     Dates: start: 20040101
  10. VYTORIN [Concomitant]
     Indication: HYPERCHOLESTEROLAEMIA
     Dosage: TEXT:10/20
     Route: 048

REACTIONS (1)
  - NON-SMALL CELL LUNG CANCER [None]
